FAERS Safety Report 4879150-1 (Version None)
Quarter: 2006Q1

REPORT INFORMATION
  Report Type: 
  Country: None (occurrence: None)
  Receive Date: 20060112
  Receipt Date: 20060105
  Transmission Date: 20060701
  Serious: Yes (Hospitalization)
  Sender: FDA-Public Use
  Company Number: FR-ROCHE-431205

PATIENT
  Sex: Male

DRUGS (4)
  1. VALIUM [Suspect]
     Route: 064
     Dates: start: 20040708, end: 20040715
  2. MIZOLLEN [Suspect]
     Route: 064
     Dates: start: 20040708, end: 20040715
  3. DIVARIUS [Suspect]
     Route: 064
     Dates: start: 20040708, end: 20040715
  4. AOTAL [Suspect]
     Route: 064
     Dates: start: 20040708, end: 20040715

REACTIONS (6)
  - CAESAREAN SECTION [None]
  - DRUG EXPOSURE DURING PREGNANCY [None]
  - POLYHYDRAMNIOS [None]
  - PREGNANCY [None]
  - PREMATURE LABOUR [None]
  - PREMATURE RUPTURE OF MEMBRANES [None]
